FAERS Safety Report 25682811 (Version 1)
Quarter: 2025Q3

REPORT INFORMATION
  Report Type: Spontaneous
  Country: CN (occurrence: CN)
  Receive Date: 20250814
  Receipt Date: 20250814
  Transmission Date: 20251020
  Serious: Yes (Other)
  Sender: AMGEN
  Company Number: CN-AMGEN-CHNSP2025157293

PATIENT
  Age: 11 Year
  Sex: Male

DRUGS (4)
  1. BLINATUMOMAB [Suspect]
     Active Substance: BLINATUMOMAB
     Indication: Acute lymphocytic leukaemia
     Dosage: 5 MICROGRAM/SQ. METER, QD (FIRST WEEK RAMP UP DOSE) DRIP INFUSION
     Route: 040
  2. BLINATUMOMAB [Suspect]
     Active Substance: BLINATUMOMAB
     Dosage: 15 MICROGRAM/SQ. METER, QD (STANDARD DOSE) DRIP INFUSION
     Route: 040
  3. DEXAMETHASONE [Concomitant]
     Active Substance: DEXAMETHASONE
     Route: 040
  4. DASATINIB [Concomitant]
     Active Substance: DASATINIB
     Route: 065

REACTIONS (3)
  - Acute graft versus host disease [Unknown]
  - Status epilepticus [Unknown]
  - Sepsis [Unknown]
